FAERS Safety Report 9677861 (Version 2)
Quarter: 2014Q1

REPORT INFORMATION
  Report Type: Spontaneous
  Country: IT (occurrence: IT)
  Receive Date: 20131108
  Receipt Date: 20140107
  Transmission Date: 20141002
  Serious: Yes (Hospitalization)
  Sender: FDA-Public Use
  Company Number: IT-SA-2013SA111839

PATIENT
  Age: 76 Year
  Sex: Female

DRUGS (7)
  1. AMARYL [Suspect]
     Indication: TYPE 2 DIABETES MELLITUS
     Route: 048
     Dates: start: 2012, end: 2013
  2. FLECAINIDE [Suspect]
     Indication: ATRIAL FIBRILLATION
     Dosage: STRENGTH: 100 MG TABLET
     Route: 048
     Dates: start: 2013, end: 2013
  3. BLOPRESID [Concomitant]
     Indication: HYPERTENSION
     Dosage: DOSE:1 UNIT(S)
     Route: 048
  4. CARDURA [Concomitant]
     Indication: HYPERTENSION
     Dosage: MODIFIED RELEASE TABLET
     Route: 048
  5. LANSOX [Concomitant]
     Indication: PROPHYLAXIS
     Dosage: ORODISPERSIBLE TABLET DOSE:1 UNIT(S)
     Route: 048
  6. COUMADIN [Concomitant]
     Indication: ATRIAL FIBRILLATION
     Route: 048
  7. FUROSEMIDE [Concomitant]
     Indication: CARDIAC FAILURE
     Dosage: DOSE:1 UNIT(S)
     Route: 048

REACTIONS (3)
  - Hypotension [Recovered/Resolved]
  - Bradycardia [Recovered/Resolved]
  - Hypoglycaemia [Recovered/Resolved]
